FAERS Safety Report 10090155 (Version 2)
Quarter: 2014Q2

REPORT INFORMATION
  Report Type: Spontaneous
  Country: CN (occurrence: CN)
  Receive Date: 20140421
  Receipt Date: 20140429
  Transmission Date: 20141212
  Serious: No
  Sender: FDA-Public Use
  Company Number: CN-PFIZER INC-2014105685

PATIENT
  Age: 85 Year
  Sex: Male
  Weight: 60 kg

DRUGS (2)
  1. DIFLUCAN [Suspect]
     Indication: PNEUMONIA
     Dosage: 0.2 G, 1X/DAY
     Route: 041
     Dates: start: 20130828, end: 20130904
  2. DIFLUCAN [Suspect]
     Indication: PNEUMONIA
     Dosage: 100 MG, 1X/DAY
     Route: 048
     Dates: start: 20130904

REACTIONS (1)
  - Hepatic enzyme increased [Recovering/Resolving]
